FAERS Safety Report 8208491-5 (Version None)
Quarter: 2012Q1

REPORT INFORMATION
  Report Type: 
  Country: None (occurrence: None)
  Receive Date: 20120314
  Receipt Date: 20120306
  Transmission Date: 20120608
  Serious: Yes (Other)
  Sender: FDA-Public Use
  Company Number: CA-JNJFOC-20120303821

PATIENT
  Sex: Female
  Weight: 67 kg

DRUGS (4)
  1. METHOTREXATE [Concomitant]
     Route: 048
  2. LORAZEPAM [Concomitant]
     Route: 065
  3. PAROXETINE [Concomitant]
     Route: 065
  4. REMICADE [Suspect]
     Indication: RHEUMATOID ARTHRITIS
     Route: 042
     Dates: start: 20030709

REACTIONS (1)
  - ABDOMINAL DISTENSION [None]
